APPROVED DRUG PRODUCT: HYDROCORTONE
Active Ingredient: HYDROCORTISONE
Strength: 10MG
Dosage Form/Route: TABLET;ORAL
Application: N008506 | Product #007
Applicant: MERCK AND CO INC
Approved: Approved Prior to Jan 1, 1982 | RLD: No | RS: No | Type: DISCN